FAERS Safety Report 9971554 (Version 2)
Quarter: 2014Q1

REPORT INFORMATION
  Report Type: Report from Study
  Country: NL (occurrence: NL)
  Receive Date: 20140306
  Receipt Date: 20140319
  Transmission Date: 20141002
  Serious: Yes (Death, Other)
  Sender: FDA-Public Use
  Company Number: PHHY2014NL027361

PATIENT
  Sex: Male
  Weight: 118 kg

DRUGS (11)
  1. ZOMETA [Suspect]
     Indication: PROSTATE CANCER
     Dosage: 4MG/100ML, ONCE EVERY 8 WEEKS
     Route: 042
  2. ZOMETA [Suspect]
     Dosage: 4MG/100ML, ONCE EVERY 8 WEEKS
     Route: 042
     Dates: start: 20130731
  3. ZOMETA [Suspect]
     Dosage: 4MG/100ML, ONCE EVERY 8 WEEKS
     Route: 042
     Dates: start: 20131125
  4. ZOMETA [Suspect]
     Dosage: 4MG/100ML, ONCE EVERY 8 WEEKS
     Route: 042
     Dates: start: 20140124
  5. NADROPARIN [Concomitant]
     Dosage: 3800 IU, UNK
     Route: 058
  6. CEFTRIAXON [Concomitant]
     Dosage: 2 FLACONS
     Route: 042
  7. SALBUTAMOL W/IPRATROPIUM [Concomitant]
     Dosage: UNK UKN, UNK
  8. PREDNISOLONE [Concomitant]
     Dosage: 2 DD 5 MG
     Route: 048
  9. PANTOPRAZOLE [Concomitant]
     Dosage: 1 DD 40 MG
     Route: 048
  10. PARACETAMOL [Concomitant]
     Dosage: 4 DD 1 G
     Route: 048
  11. MORPHINE [Concomitant]
     Dosage: 4 DD 2.5 MG
     Route: 058

REACTIONS (5)
  - Coagulopathy [Fatal]
  - Dyspnoea [Fatal]
  - Metastases to bone [Fatal]
  - Metastases to lymph nodes [Fatal]
  - Pathological fracture [Unknown]
